FAERS Safety Report 18200481 (Version 1)
Quarter: 2020Q3

REPORT INFORMATION
  Report Type: Spontaneous
  Country: IN (occurrence: IN)
  Receive Date: 20200826
  Receipt Date: 20200826
  Transmission Date: 20201103
  Serious: Yes (Other)
  Sender: FDA-Public Use
  Company Number: NVSC2020IN234801

PATIENT
  Age: 60 Year
  Sex: Male

DRUGS (1)
  1. DICLOFENAC [Suspect]
     Active Substance: DICLOFENAC
     Indication: PAIN
     Dosage: 75 MG
     Route: 030

REACTIONS (5)
  - Injection site pain [Unknown]
  - Gait disturbance [Unknown]
  - Skin swelling [Unknown]
  - Skin discolouration [Unknown]
  - Embolia cutis medicamentosa [Unknown]
